FAERS Safety Report 16629274 (Version 3)
Quarter: 2020Q4

REPORT INFORMATION
  Report Type: Spontaneous
  Country: CA (occurrence: CA)
  Receive Date: 20190725
  Receipt Date: 20201014
  Transmission Date: 20210113
  Serious: Yes (Other)
  Sender: FDA-Public Use
  Company Number: CA-ORION CORPORATION ORION PHARMA-TREX2019-1194

PATIENT
  Age: 68 Year
  Sex: Female

DRUGS (12)
  1. FOLIC ACID. [Concomitant]
     Active Substance: FOLIC ACID
     Dosage: 6/7
     Route: 065
  2. XELJANZ [Concomitant]
     Active Substance: TOFACITINIB CITRATE
     Indication: RHEUMATOID ARTHRITIS
     Route: 048
     Dates: start: 201905, end: 2020
  3. XELJANZ XR [Concomitant]
     Active Substance: TOFACITINIB CITRATE
     Route: 048
     Dates: start: 2020
  4. METHOTREXATE (TRADE NAME UNKNOWN) [Suspect]
     Active Substance: METHOTREXATE
     Indication: PRODUCT USED FOR UNKNOWN INDICATION
     Route: 048
     Dates: start: 201707, end: 20200918
  5. ORENCIA [Concomitant]
     Active Substance: ABATACEPT
     Route: 042
     Dates: start: 201806, end: 20190415
  6. CORTISONE [Concomitant]
     Active Substance: CORTISONE
     Route: 065
  7. FOLIC ACID. [Concomitant]
     Active Substance: FOLIC ACID
     Route: 065
  8. PLAQUENIL [Concomitant]
     Active Substance: HYDROXYCHLOROQUINE SULFATE
     Route: 048
     Dates: start: 201706
  9. PLAQUENIL [Concomitant]
     Active Substance: HYDROXYCHLOROQUINE SULFATE
     Route: 048
  10. PREDNISONE. [Concomitant]
     Active Substance: PREDNISONE
     Dosage: TWICE (8 WEEKS EACH), CURRENTLY AT 5 MG SINCE A FEW WEEKS AND REDUCED IT
     Route: 065
     Dates: start: 2019
  11. APO-LEFLUNOMIDE [Concomitant]
     Active Substance: LEFLUNOMIDE
     Route: 048
     Dates: start: 20200918
  12. XELJANZ XR [Concomitant]
     Active Substance: TOFACITINIB CITRATE
     Indication: RHEUMATOID ARTHRITIS
     Route: 048
     Dates: start: 2020, end: 202003

REACTIONS (5)
  - Drug ineffective [Unknown]
  - Interstitial lung disease [Not Recovered/Not Resolved]
  - Vitamin B12 decreased [Unknown]
  - Diarrhoea [Unknown]
  - Pharyngitis [Unknown]
